FAERS Safety Report 8260185-6 (Version None)
Quarter: 2012Q2

REPORT INFORMATION
  Report Type: 
  Country: None (occurrence: None)
  Receive Date: 20120404
  Receipt Date: 20120328
  Transmission Date: 20120825
  Serious: Yes (Hospitalization)
  Sender: FDA-Public Use
  Company Number: TR-JNJFOC-20120313452

PATIENT
  Sex: Male
  Weight: 71.3 kg

DRUGS (2)
  1. PALIPERIDONE PALMITAT [Suspect]
     Route: 030
     Dates: start: 20120327
  2. PALIPERIDONE PALMITAT [Suspect]
     Indication: SCHIZOPHRENIA
     Route: 030
     Dates: start: 20110818

REACTIONS (1)
  - PSYCHOTIC DISORDER [None]
